FAERS Safety Report 5083647-1 (Version None)
Quarter: 2006Q3

REPORT INFORMATION
  Report Type: 
  Country: None (occurrence: None)
  Receive Date: 20060816
  Receipt Date: 20060809
  Transmission Date: 20061208
  Serious: Yes (Death, Hospitalization)
  Sender: FDA-Public Use
  Company Number: TPA2006A00912

PATIENT
  Age: 68 Year
  Sex: Male

DRUGS (2)
  1. ACTOS [Suspect]
     Indication: DIABETES MELLITUS INADEQUATE CONTROL
     Dosage: 30 MG, 1 IN 1 D, PER ORAL
     Route: 048
     Dates: start: 20040203, end: 20040309
  2. METFORMIN (METFORMIN) (500 MILLIGRAM, TABLETS) [Suspect]
     Indication: DIABETES MELLITUS NON-INSULIN-DEPENDENT
     Dosage: PER DAY, PER ORAL
     Route: 048
     Dates: start: 20040120, end: 20040309

REACTIONS (16)
  - ANGIOPATHY [None]
  - CALCULUS URINARY [None]
  - DUODENAL ULCER PERFORATION [None]
  - GASTROINTESTINAL HYPOMOTILITY [None]
  - HORSESHOE KIDNEY [None]
  - INFECTION [None]
  - LIVER DISORDER [None]
  - MULTI-ORGAN DISORDER [None]
  - NEPHRITIS [None]
  - PERITONITIS [None]
  - PULMONARY OEDEMA [None]
  - PULMONARY VASCULAR DISORDER [None]
  - PYELONEPHRITIS [None]
  - RENAL VESSEL DISORDER [None]
  - SPLEEN DISORDER [None]
  - URETHRITIS [None]
